FAERS Safety Report 24744895 (Version 1)
Quarter: 2024Q4

REPORT INFORMATION
  Report Type: Spontaneous
  Country: US (occurrence: None)
  Receive Date: 20241217
  Receipt Date: 20241217
  Transmission Date: 20250114
  Serious: No
  Sender: Public
  Company Number: None

PATIENT
  Age: 70 Year
  Sex: Female
  Weight: 74.7 kg

DRUGS (13)
  1. XIIDRA [Suspect]
     Active Substance: LIFITEGRAST
     Indication: Dry eye
     Dosage: OTHER QUANTITY : 2 DROP(S);?FREQUENCY : TWICE A DAY;?
     Route: 047
     Dates: start: 20241216, end: 20241216
  2. LEVOTHYROXINE [Concomitant]
     Active Substance: LEVOTHYROXINE
  3. GABAPENTIN [Concomitant]
     Active Substance: GABAPENTIN
  4. PRAVASTATIN [Concomitant]
     Active Substance: PRAVASTATIN
  5. PEPCID [Concomitant]
     Active Substance: FAMOTIDINE
  6. VITAMINS [Concomitant]
     Active Substance: VITAMINS
  7. DIETARY SUPPLEMENT\RESVERATROL [Concomitant]
     Active Substance: DIETARY SUPPLEMENT\RESVERATROL
  8. CALCIUM [Concomitant]
     Active Substance: CALCIUM
  9. GINKGO [Concomitant]
     Active Substance: GINKGO
  10. COLLAGEN [Concomitant]
     Active Substance: COLLAGEN
  11. hyalauronic acid [Concomitant]
  12. CINNAMON [Concomitant]
     Active Substance: CINNAMON
  13. coffee cherry [Concomitant]

REACTIONS (4)
  - Product substitution issue [None]
  - Instillation site irritation [None]
  - Instillation site irritation [None]
  - Vision blurred [None]

NARRATIVE: CASE EVENT DATE: 20241216
